FAERS Safety Report 18221193 (Version 2)
Quarter: 2020Q4

REPORT INFORMATION
  Report Type: Report from Study
  Country: GB (occurrence: GB)
  Receive Date: 20200902
  Receipt Date: 20201015
  Transmission Date: 20210113
  Serious: Yes (Other)
  Sender: FDA-Public Use
  Company Number: NVSC2020GB239032

PATIENT
  Sex: Male

DRUGS (1)
  1. COSENTYX [Suspect]
     Active Substance: SECUKINUMAB
     Indication: ANKYLOSING SPONDYLITIS
     Dosage: 300 MG
     Route: 058
     Dates: start: 201908, end: 202001

REACTIONS (4)
  - Migraine [Unknown]
  - Mouth ulceration [Recovering/Resolving]
  - Cough [Unknown]
  - Pain [Unknown]
